FAERS Safety Report 4445024-3 (Version None)
Quarter: 2004Q3

REPORT INFORMATION
  Report Type: 
  Country: None (occurrence: None)
  Receive Date: 20040907
  Receipt Date: 20040824
  Transmission Date: 20050211
  Serious: Yes (Hospitalization, Other)
  Sender: FDA-Public Use
  Company Number: 2004059888

PATIENT
  Age: 65 Year
  Sex: Male

DRUGS (10)
  1. PHENYTOIN [Suspect]
     Indication: GRAND MAL CONVULSION
     Dosage: 300 MG
  2. FLUOROURACIL [Suspect]
     Indication: COLON CANCER
     Dosage: 370 MG/M2 (370 MG/M2, 1 IN 1 WK)
  3. PHENOBARBITAL TAB [Suspect]
     Indication: GRAND MAL CONVULSION
     Dosage: 90 MG
  4. LEUCOVORIN CALCIUM [Suspect]
     Indication: COLON CANCER
     Dosage: 20 MG (20 MG, 1 IN 1 WK)
  5. NORPHINE (MORPHINE) [Concomitant]
  6. LACTULOSE [Concomitant]
  7. DOCUSATE SODIUM (DOCUSATE SODIUM) [Concomitant]
  8. SENNA (SENNA) [Concomitant]
  9. MULTIVITAMINS (ASCORBIC ACID, ERGOCALCIFEROL, FOLIC ACID, NICOTINAMIDE [Concomitant]
  10. LORATADINE [Concomitant]

REACTIONS (12)
  - ANTICONVULSANT DRUG LEVEL ABOVE THERAPEUTIC [None]
  - ASTHENIA [None]
  - ATAXIA [None]
  - COLON CANCER [None]
  - CONFUSIONAL STATE [None]
  - DIFFICULTY IN WALKING [None]
  - DYSARTHRIA [None]
  - DYSSTASIA [None]
  - FATIGUE [None]
  - MALIGNANT NEOPLASM PROGRESSION [None]
  - NYSTAGMUS [None]
  - SOMNOLENCE [None]
